FAERS Safety Report 5217466-X (Version None)
Quarter: 2007Q1

REPORT INFORMATION
  Report Type: 
  Country: None (occurrence: None)
  Receive Date: 20070124
  Receipt Date: 20070117
  Transmission Date: 20070707
  Serious: Yes (Hospitalization)
  Sender: FDA-Public Use
  Company Number: US-ROCHE-478777

PATIENT
  Age: 70 Year
  Sex: Female
  Weight: 54.4 kg

DRUGS (11)
  1. BONIVA [Suspect]
     Indication: OSTEOPOROSIS
     Route: 048
     Dates: start: 20051015, end: 20061028
  2. VERAPAMIL [Concomitant]
     Route: 048
  3. TOPROL-XL [Concomitant]
     Route: 048
     Dates: end: 20061028
  4. DIOVAN [Concomitant]
     Route: 048
     Dates: end: 20061028
  5. ZOCOR [Concomitant]
     Route: 048
     Dates: end: 20061028
  6. METFORMIN HCL [Concomitant]
     Route: 048
     Dates: end: 20061028
  7. NORTRIPTYLINE HYDROCHLORIDE [Concomitant]
     Indication: DIZZINESS
     Route: 048
     Dates: end: 20061028
  8. CALCIUM [Concomitant]
     Route: 048
     Dates: end: 20061028
  9. MULTIVITAMIN NOS [Concomitant]
     Route: 048
     Dates: end: 20061028
  10. ASPIRIN [Concomitant]
     Route: 048
     Dates: end: 20061028
  11. INSULIN [Concomitant]
     Route: 058
     Dates: start: 20061028

REACTIONS (1)
  - CEREBROVASCULAR ACCIDENT [None]
